FAERS Safety Report 12393210 (Version 1)
Quarter: 2016Q2

REPORT INFORMATION
  Report Type: Spontaneous
  Country: US (occurrence: US)
  Receive Date: 20160523
  Receipt Date: 20160523
  Transmission Date: 20160815
  Serious: No
  Sender: FDA-Public Use
  Company Number: US-PFIZER INC-2016268476

PATIENT
  Age: 32 Year
  Sex: Female
  Weight: 88 kg

DRUGS (3)
  1. TIROSINT [Concomitant]
     Active Substance: LEVOTHYROXINE SODIUM
     Indication: AUTOIMMUNE THYROIDITIS
     Dosage: 100 MG, 1X/DAY
     Route: 048
     Dates: start: 201601
  2. CYTOMEL [Suspect]
     Active Substance: LIOTHYRONINE SODIUM
     Indication: AUTOIMMUNE THYROIDITIS
     Dosage: 5 UG, 1X/DAY (5 MCG, TABLET, ORALLY, ONCE DAILY)
     Route: 048
  3. CYTOMEL [Suspect]
     Active Substance: LIOTHYRONINE SODIUM
     Dosage: 5 UG, 1X/DAY (5 MCG, TABLET, ORALLY, ONCE DAILY)
     Route: 048
     Dates: start: 201603

REACTIONS (2)
  - Gluten sensitivity [Unknown]
  - Reaction to drug excipients [Unknown]
